FAERS Safety Report 10703747 (Version 2)
Quarter: 2015Q1

REPORT INFORMATION
  Report Type: Spontaneous
  Country: FR (occurrence: FR)
  Receive Date: 20150112
  Receipt Date: 20150217
  Transmission Date: 20150721
  Serious: Yes (Life-Threatening, Hospitalization)
  Sender: FDA-Public Use
  Company Number: FR-SA-2015SA002317

PATIENT
  Age: 66 Year
  Sex: Male

DRUGS (8)
  1. LASILIX SPECIAL [Suspect]
     Active Substance: FUROSEMIDE
     Indication: CHRONIC KIDNEY DISEASE
     Dosage: ROUND TABLET
     Route: 048
  2. APROVEL [Concomitant]
     Active Substance: IRBESARTAN
     Route: 048
  3. RENAGEL [Concomitant]
     Active Substance: SEVELAMER HYDROCHLORIDE
     Route: 048
  4. CARDENSIEL [Concomitant]
     Active Substance: BISOPROLOL FUMARATE
     Route: 048
  5. PREVISCAN [Concomitant]
     Active Substance: FLUINDIONE
     Route: 048
  6. LASILIX SPECIAL [Suspect]
     Active Substance: FUROSEMIDE
     Indication: CHRONIC KIDNEY DISEASE
     Dosage: LASILIX SPECIAL OBLONG TABLET
     Route: 048
  7. KAYEXALATE [Concomitant]
     Active Substance: SODIUM POLYSTYRENE SULFONATE
     Route: 048
  8. TAHOR [Concomitant]
     Active Substance: ATORVASTATIN CALCIUM
     Route: 048

REACTIONS (3)
  - Oedema peripheral [Recovering/Resolving]
  - Anuria [Recovering/Resolving]
  - Drug ineffective [Unknown]

NARRATIVE: CASE EVENT DATE: 201501
